FAERS Safety Report 23247727 (Version 2)
Quarter: 2023Q4

REPORT INFORMATION
  Report Type: Spontaneous
  Country: FR (occurrence: FR)
  Receive Date: 20231130
  Receipt Date: 20231219
  Transmission Date: 20240110
  Serious: Yes (Other)
  Sender: FDA-Public Use
  Company Number: FR-PURDUE-USA-2023-0306239

PATIENT
  Age: 30 Year
  Sex: Female
  Weight: 58 kg

DRUGS (22)
  1. OXYCODONE HYDROCHLORIDE [Suspect]
     Active Substance: OXYCODONE HYDROCHLORIDE
     Indication: Pain
     Dosage: 5 MILLIGRAM (5 TOTAL) (5MG IF NECESSARY (LAST TAKEN ON 08/07) )
     Route: 048
     Dates: start: 20230704, end: 20230708
  2. SIMULECT [Suspect]
     Active Substance: BASILIXIMAB
     Indication: Prophylaxis
     Dosage: 20 MILLIGRAM, DAILY
     Route: 042
     Dates: start: 20230629, end: 20230703
  3. ONDANSETRON [Suspect]
     Active Substance: ONDANSETRON
     Indication: Prophylaxis
     Dosage: 3 DOSAGE FORM, DAILY
     Route: 042
     Dates: start: 20230629, end: 20230703
  4. PREDNISONE [Suspect]
     Active Substance: PREDNISONE
     Indication: Prophylaxis
     Dosage: 55 MILLIGRAM, DAILY
     Route: 048
     Dates: start: 20230629
  5. PREDNISONE [Suspect]
     Active Substance: PREDNISONE
     Dosage: 95 MILLIGRAM, DAILY (55 MG, QD; 1 TAB IN THE MORNING )
     Route: 048
  6. TAZOBACTAM [Suspect]
     Active Substance: TAZOBACTAM
     Indication: Sepsis
     Dosage: 16 GRAM, DAILY
     Route: 042
     Dates: start: 20230704, end: 20230706
  7. OXYBUTYNIN CHLORIDE [Suspect]
     Active Substance: OXYBUTYNIN CHLORIDE
     Indication: Pollakiuria
     Dosage: 5 MILLIGRAM (3 TOTAL)
     Route: 048
     Dates: start: 20230703, end: 20230704
  8. PIPERACILLIN [Suspect]
     Active Substance: PIPERACILLIN
     Indication: Sepsis
     Dosage: 16 GRAM, DAILY
     Route: 042
     Dates: start: 20230704, end: 20230706
  9. LOVENOX [Suspect]
     Active Substance: ENOXAPARIN SODIUM
     Indication: Prophylaxis
     Dosage: 1 DOSAGE FORM, DAILY
     Route: 058
     Dates: start: 20230629, end: 20230714
  10. AMLODIPINE [Suspect]
     Active Substance: AMLODIPINE BESYLATE
     Indication: Hypertension
     Dosage: 10 MILLIGRAM, DAILY
     Route: 048
     Dates: start: 20230629, end: 20230728
  11. PHLOROGLUCINOL [Suspect]
     Active Substance: PHLOROGLUCINOL
     Indication: Pain
     Dosage: 80 MILLIGRAM (2 TOTAL)
     Route: 048
     Dates: start: 20230703, end: 20230703
  12. AMIKACIN [Suspect]
     Active Substance: AMIKACIN
     Indication: Sepsis
     Dosage: 850 MILLIGRAM (1 TOTAL)
     Route: 042
     Dates: start: 20230703, end: 20230703
  13. CEFTRIAXONE [Suspect]
     Active Substance: CEFTRIAXONE\CEFTRIAXONE SODIUM
     Indication: Sepsis
     Dosage: 1000 MILLIGRAM (1 TOTAL)
     Route: 042
     Dates: start: 20230703, end: 20230703
  14. ACETAMINOPHEN [Suspect]
     Active Substance: ACETAMINOPHEN
     Indication: Product used for unknown indication
     Dosage: 1 GRAM
     Route: 065
  15. PIPERACILLIN SODIUM\TAZOBACTAM SODIUM [Suspect]
     Active Substance: PIPERACILLIN SODIUM\TAZOBACTAM SODIUM
     Indication: Sepsis
     Dosage: 16 MILLIGRAM, DAILY (6 G, QD )
     Route: 042
     Dates: start: 20230704, end: 20230706
  16. LANSOPRAZOLE [Suspect]
     Active Substance: LANSOPRAZOLE
     Indication: Product used for unknown indication
     Dosage: 15 MILLIGRAM, DAILY (1 TAB IN THE EVENING)
     Route: 065
  17. CALCIUM PHOSPHATE, DIBASIC, ANHYDROUS\MAGNESIUM GLYCEROPHOSPHATE\PHOSP [Suspect]
     Active Substance: CALCIUM PHOSPHATE, DIBASIC, ANHYDROUS\MAGNESIUM GLYCEROPHOSPHATE\PHOSPHORIC ACID\SODIUM PHOSPHATE, D
     Indication: Product used for unknown indication
     Dosage: 100GTTX2/D
     Route: 065
  18. PROGRAF [Suspect]
     Active Substance: TACROLIMUS
     Indication: Product used for unknown indication
     Dosage: 3 MILLIGRAM (1 TAB IN THE MORNING )
     Route: 065
  19. AMPHOTERICIN B [Suspect]
     Active Substance: AMPHOTERICIN B
     Indication: Product used for unknown indication
     Dosage: 1TSP.X3/D
     Route: 065
  20. BISOPROLOL [Suspect]
     Active Substance: BISOPROLOL\BISOPROLOL FUMARATE
     Indication: Product used for unknown indication
     Dosage: 2.5 MILLIGRAM, DAILY (QD)
     Route: 065
  21. CELLCEPT [Suspect]
     Active Substance: MYCOPHENOLATE MOFETIL
     Indication: Product used for unknown indication
     Dosage: 100 MILLIGRAM, 1 TAB IN THE MORNING AND 1 TAB IN THE EVENING
     Route: 065
  22. MOVICOL [Suspect]
     Active Substance: POLYETHYLENE GLYCOL 3350\POTASSIUM CHLORIDE\SODIUM BICARBONATE\SODIUM CHLORIDE
     Indication: Product used for unknown indication
     Dosage: 1 TO 2 SACHETS/DAY IF NECESSARY
     Route: 065

REACTIONS (1)
  - Hyperacusis [Recovering/Resolving]

NARRATIVE: CASE EVENT DATE: 20230701
